FAERS Safety Report 9099894 (Version 1)
Quarter: 2013Q1

REPORT INFORMATION
  Report Type: Report from Study
  Country: GB (occurrence: GB)
  Receive Date: 20130214
  Receipt Date: 20130214
  Transmission Date: 20140127
  Serious: Yes (Hospitalization)
  Sender: FDA-Public Use
  Company Number: GB-ROCHE-1190475

PATIENT
  Sex: Female

DRUGS (7)
  1. TOCILIZUMAB [Suspect]
     Indication: RHEUMATOID ARTHRITIS
     Dosage: TEMPORARILY STOPPED
     Route: 065
     Dates: start: 20120327, end: 20120710
  2. TOCILIZUMAB [Suspect]
     Route: 065
     Dates: start: 201210
  3. METHOTREXATE [Concomitant]
     Dosage: PRE APRIL 2012
     Route: 065
  4. WARFARIN [Concomitant]
  5. FLUCLOXACILLIN [Concomitant]
  6. INDAPAMIDE [Concomitant]
  7. AMLODIPINE [Concomitant]

REACTIONS (2)
  - Cellulitis [Unknown]
  - Deep vein thrombosis [Unknown]
